FAERS Safety Report 4309456-6 (Version None)
Quarter: 2004Q1

REPORT INFORMATION
  Report Type: 
  Country: None (occurrence: None)
  Receive Date: 20040301
  Receipt Date: 20040216
  Transmission Date: 20041129
  Serious: Yes (Life-Threatening, Hospitalization)
  Sender: FDA-Public Use
  Company Number: 2004010565

PATIENT
  Sex: Male

DRUGS (4)
  1. AMLODIPINE [Suspect]
     Indication: ILL-DEFINED DISORDER
     Dosage: 5 MG DAILY, ORAL
     Route: 048
  2. SIMVASTATIN [Suspect]
     Indication: ILL-DEFINED DISORDER
     Dosage: 20 MG DAILY, ORAL
     Route: 048
  3. ACETYLSALICYLIC ACID SRT [Concomitant]
  4. ENOXAPARIN SODIUM [Concomitant]

REACTIONS (1)
  - THROMBOTIC THROMBOCYTOPENIC PURPURA [None]
